FAERS Safety Report 7471270-0 (Version None)
Quarter: 2011Q2

REPORT INFORMATION
  Report Type: 
  Country: None (occurrence: None)
  Receive Date: 20110510
  Receipt Date: 20110504
  Transmission Date: 20111010
  Serious: Yes (Death, Hospitalization)
  Sender: FDA-Public Use
  Company Number: RU-ABBOTT-10P-251-0645878-00

PATIENT
  Sex: Female
  Weight: 50 kg

DRUGS (3)
  1. EPIVIR [Concomitant]
     Indication: HIV INFECTION
     Route: 048
     Dates: start: 20081029, end: 20090801
  2. KALETRA [Suspect]
     Indication: HIV INFECTION
     Route: 048
     Dates: start: 20081029, end: 20090801
  3. NICAVIR [Concomitant]
     Indication: HIV INFECTION
     Route: 048
     Dates: start: 20081029, end: 20090801

REACTIONS (2)
  - LYMPH NODE TUBERCULOSIS [None]
  - PULMONARY TUBERCULOSIS [None]
